FAERS Safety Report 17663097 (Version 3)
Quarter: 2020Q3

REPORT INFORMATION
  Report Type: Spontaneous
  Country: US (occurrence: US)
  Receive Date: 20200413
  Receipt Date: 20200723
  Transmission Date: 20201102
  Serious: Yes (Death, Life-Threatening, Hospitalization, Other)
  Sender: FDA-Public Use
  Company Number: US-PURDUE-USA-2020-0151667

PATIENT
  Sex: Male

DRUGS (2)
  1. OXYCONTIN [Suspect]
     Active Substance: OXYCODONE HYDROCHLORIDE
     Indication: PAIN
     Dosage: 2 X 80MG, UNK
     Route: 048
  2. OXYCONTIN [Suspect]
     Active Substance: OXYCODONE HYDROCHLORIDE
     Indication: SCIATICA
     Dosage: 80 UNK
     Route: 048

REACTIONS (6)
  - Intentional product misuse [Unknown]
  - Overdose [Recovered/Resolved]
  - Loss of consciousness [Recovered/Resolved]
  - Myocardial infarction [Unknown]
  - Death [Fatal]
  - Drug dependence [Unknown]
